FAERS Safety Report 23964623 (Version 1)
Quarter: 2024Q2

REPORT INFORMATION
  Report Type: Spontaneous
  Country: US (occurrence: US)
  Receive Date: 20240612
  Receipt Date: 20240612
  Transmission Date: 20240715
  Serious: No
  Sender: FDA-Public Use
  Company Number: US-ELI_LILLY_AND_COMPANY-US202406005444

PATIENT
  Age: 46 Year
  Sex: Male

DRUGS (1)
  1. HUMALOG [Suspect]
     Active Substance: INSULIN LISPRO
     Indication: Product used for unknown indication
     Dosage: 99 U, DAILY
     Route: 065

REACTIONS (3)
  - Nervous system disorder [Unknown]
  - Asthma [Unknown]
  - Cardiac disorder [Unknown]
